FAERS Safety Report 9445181 (Version 2)
Quarter: 2014Q1

REPORT INFORMATION
  Report Type: Spontaneous
  Country: US (occurrence: US)
  Receive Date: 20130807
  Receipt Date: 20140117
  Transmission Date: 20141002
  Serious: Yes (Hospitalization)
  Sender: FDA-Public Use
  Company Number: US-B.I. PHARMACEUTICALS,INC./RIDGEFIELD-2013-BI-23880BP

PATIENT
  Sex: Male
  Weight: 81.65 kg

DRUGS (10)
  1. PRADAXA [Suspect]
     Dosage: 150 MG
     Dates: start: 20121022, end: 20130106
  2. AMIODARONE HCL [Concomitant]
     Dosage: 400 MG
     Route: 048
  3. CLONAZEPAM [Concomitant]
     Dosage: 5 MG
     Route: 048
  4. COENZYME Q10 [Concomitant]
     Route: 048
  5. LEVOTHYROXINE SODIUM [Concomitant]
     Dosage: 75 MCG
     Route: 048
  6. METOPROLOL SUCCINATE ER [Concomitant]
     Dosage: 50 MG
     Route: 048
  7. PRAVACHOL [Concomitant]
     Dosage: 40 MG
     Route: 048
  8. PRILOSEC [Concomitant]
     Dosage: 20 MG
     Route: 048
  9. TORSEMIDE [Concomitant]
     Route: 048
  10. VITAMIN D [Concomitant]

REACTIONS (1)
  - Gastrointestinal haemorrhage [Unknown]
